FAERS Safety Report 18175479 (Version 1)
Quarter: 2020Q3

REPORT INFORMATION
  Report Type: Spontaneous
  Country: US (occurrence: US)
  Receive Date: 20200820
  Receipt Date: 20200820
  Transmission Date: 20201103
  Serious: Yes (Other)
  Sender: FDA-Public Use
  Company Number: US-PFIZER INC-2020319750

PATIENT
  Age: 70 Year
  Sex: Female

DRUGS (1)
  1. PROPANOLOL HCL [Suspect]
     Active Substance: PROPRANOLOL HYDROCHLORIDE
     Indication: BLOOD PRESSURE ABNORMAL
     Dosage: ONE, 10 MG TABLET FOR THREE DAYS, THEN TWO, 10 MG TABLETS FOR THREE DAYS, THEN THREE, 10 MG TABLETS
     Dates: start: 20200511

REACTIONS (4)
  - Peripheral swelling [Not Recovered/Not Resolved]
  - Anaphylactic shock [Unknown]
  - Dyspnoea [Unknown]
  - Gait disturbance [Unknown]
